FAERS Safety Report 18741513 (Version 1)
Quarter: 2021Q1

REPORT INFORMATION
  Report Type: Spontaneous
  Country: US (occurrence: US)
  Receive Date: 20210114
  Receipt Date: 20210114
  Transmission Date: 20210419
  Serious: No
  Sender: FDA-Public Use
  Company Number: US-ABBVIE-20K-163-3485172-00

PATIENT
  Sex: Male

DRUGS (1)
  1. DUOPA [Suspect]
     Active Substance: CARBIDOPA\LEVODOPA
     Indication: PRODUCT USED FOR UNKNOWN INDICATION
     Route: 050
     Dates: start: 201908

REACTIONS (4)
  - Device issue [Recovered/Resolved]
  - Hallucination [Not Recovered/Not Resolved]
  - Dementia [Not Recovered/Not Resolved]
  - Delusion [Not Recovered/Not Resolved]
